FAERS Safety Report 18595551 (Version 2)
Quarter: 2021Q1

REPORT INFORMATION
  Report Type: Spontaneous
  Country: US (occurrence: US)
  Receive Date: 20201209
  Receipt Date: 20210303
  Transmission Date: 20210419
  Serious: No
  Sender: FDA-Public Use
  Company Number: US-PFIZER INC-2019356972

PATIENT
  Age: 48 Year
  Sex: Female

DRUGS (1)
  1. XELJANZ XR [Suspect]
     Active Substance: TOFACITINIB CITRATE
     Indication: RHEUMATOID ARTHRITIS
     Dosage: 11 MG, UNK
     Route: 048
     Dates: start: 20190816

REACTIONS (12)
  - Tendonitis [Unknown]
  - Contusion [Unknown]
  - Constipation [Unknown]
  - Arthralgia [Recovered/Resolved]
  - Skin disorder [Unknown]
  - Fatigue [Unknown]
  - Intentional product misuse [Unknown]
  - Epistaxis [Unknown]
  - Vision blurred [Unknown]
  - Fungal infection [Unknown]
  - Product dose omission issue [Unknown]
  - Pigmentation disorder [Unknown]
